FAERS Safety Report 8911139 (Version 1)
Quarter: 2012Q4

REPORT INFORMATION
  Report Type: Spontaneous
  Country: US (occurrence: None)
  Receive Date: 20121114
  Receipt Date: 20121114
  Transmission Date: 20130627
  Serious: Yes (Hospitalization)
  Sender: FDA-Public Use
  Company Number: None

PATIENT
  Age: 17 Year
  Sex: Female

DRUGS (10)
  1. OXACILLIN [Suspect]
     Dates: start: 20110228, end: 20110309
  2. AZITHROMYCIN [Concomitant]
  3. CEFAZOLIN [Concomitant]
  4. CEFOTAXIME [Concomitant]
  5. CEFOXITIN [Concomitant]
  6. CEFTRIAXONE [Concomitant]
  7. METOCLOPRAMIDE [Concomitant]
  8. PARACETAMOL [Concomitant]
  9. SULFAMETHOXAZOLE W/TRIMETHOPRIM [Concomitant]
  10. VANCOMYCIN [Concomitant]

REACTIONS (10)
  - Malaise [None]
  - Nausea [None]
  - Vomiting [None]
  - Pneumonia [None]
  - Endocarditis staphylococcal [None]
  - Pulmonary embolism [None]
  - Septic embolus [None]
  - Hepatic steatosis [None]
  - Cholelithiasis [None]
  - Hepatitis [None]
